FAERS Safety Report 22370291 (Version 2)
Quarter: 2023Q2

REPORT INFORMATION
  Report Type: Report from Study
  Country: CA (occurrence: CA)
  Receive Date: 20230526
  Receipt Date: 20230627
  Transmission Date: 20230722
  Serious: Yes (Other)
  Sender: FDA-Public Use
  Company Number: CA-JNJFOC-20200200983

PATIENT
  Age: 4 Decade
  Sex: Female
  Weight: 73.9 kg

DRUGS (3)
  1. REMICADE [Suspect]
     Active Substance: INFLIXIMAB
     Indication: Colitis ulcerative
     Dosage: EXPIRATION DATE: 30-SEP-2025
     Route: 041
     Dates: start: 20120222
  2. REMICADE [Suspect]
     Active Substance: INFLIXIMAB
     Indication: Crohn^s disease
  3. KEFLEX [Suspect]
     Active Substance: CEPHALEXIN
     Indication: Staphylococcal infection
     Dosage: FOR 10 DAYS
     Route: 048
     Dates: end: 20230618

REACTIONS (8)
  - Staphylococcal infection [Not Recovered/Not Resolved]
  - Cellulitis [Not Recovered/Not Resolved]
  - Infusion site extravasation [Unknown]
  - Muscle swelling [Unknown]
  - Myalgia [Unknown]
  - Infusion related reaction [Unknown]
  - Abdominal discomfort [Unknown]
  - Stress [Unknown]

NARRATIVE: CASE EVENT DATE: 20170101
